FAERS Safety Report 7339037-1 (Version None)
Quarter: 2011Q1

REPORT INFORMATION
  Report Type: 
  Country: None (occurrence: None)
  Receive Date: 20110308
  Receipt Date: 20110223
  Transmission Date: 20110831
  Serious: Yes (Hospitalization, Other)
  Sender: FDA-Public Use
  Company Number: FR-ELI_LILLY_AND_COMPANY-FR201102007366

PATIENT
  Sex: Male

DRUGS (16)
  1. CYMBALTA [Suspect]
     Dosage: UNK, UNKNOWN
  2. AMLOR [Concomitant]
     Dosage: 5 MG, DAILY (1/D)
     Route: 048
  3. PROTELOS [Concomitant]
     Dosage: 1 D/F, EACH EVENING
     Route: 048
  4. TAHOR [Concomitant]
     Dosage: 20 MG, EACH EVENING
     Route: 048
  5. RIVOTRIL [Concomitant]
     Dosage: UNK, UNKNOWN
  6. RIVOTRIL [Concomitant]
     Dosage: UNK, UNKNOWN
  7. LYRICA [Concomitant]
     Dosage: 150 MG, 3/D
     Route: 048
     Dates: start: 20060101
  8. LAROXYL [Concomitant]
     Dosage: 75 MG, EACH EVENING
     Route: 048
     Dates: start: 20070101
  9. LAROXYL [Concomitant]
     Dosage: UNK, UNKNOWN
  10. BIPRETERAX [Concomitant]
     Dosage: 1 D/F, EACH EVENING
     Route: 048
  11. PLAVIX [Concomitant]
     Dosage: 75 MG, DAILY (1/D)
  12. LYRICA [Concomitant]
  13. CYMBALTA [Suspect]
     Dosage: 60 MG, EACH EVENING
     Route: 048
     Dates: start: 20080601
  14. CYMBALTA [Suspect]
     Dosage: UNK, UNKNOWN
  15. RIVOTRIL [Concomitant]
     Dosage: 2.5MG/ML
     Route: 048
     Dates: start: 20070101
  16. DIAMICRON [Concomitant]
     Dosage: 30 MG, 2/D
     Route: 048

REACTIONS (6)
  - CEREBROVASCULAR ACCIDENT [None]
  - FALL [None]
  - RESPIRATORY RATE DECREASED [None]
  - SUICIDE ATTEMPT [None]
  - CLUMSINESS [None]
  - SOMNOLENCE [None]
